FAERS Safety Report 7528481-5 (Version None)
Quarter: 2011Q2

REPORT INFORMATION
  Report Type: 
  Country: None (occurrence: None)
  Receive Date: 20110531
  Receipt Date: 20110516
  Transmission Date: 20111010
  Serious: Yes (Hospitalization, Other)
  Sender: FDA-Public Use
  Company Number: 2011MA005973

PATIENT
  Age: 39 Year
  Sex: Female

DRUGS (3)
  1. BUPROPION HYDROCHLORIDE (WELLBUTRIN XL) [Suspect]
  2. TRAMADOL HCL [Concomitant]
  3. NORTRIPTYLINE HCL [Concomitant]

REACTIONS (9)
  - SPINAL COMPRESSION FRACTURE [None]
  - POSTURE ABNORMAL [None]
  - METABOLIC DISORDER [None]
  - CONVULSIVE THRESHOLD LOWERED [None]
  - TOXICITY TO VARIOUS AGENTS [None]
  - CONFUSIONAL STATE [None]
  - ELECTROCARDIOGRAM QRS COMPLEX PROLONGED [None]
  - CONVULSION [None]
  - HEART RATE INCREASED [None]
